FAERS Safety Report 23262053 (Version 2)
Quarter: 2024Q1

REPORT INFORMATION
  Report Type: Spontaneous
  Country: AR (occurrence: AR)
  Receive Date: 20231205
  Receipt Date: 20240122
  Transmission Date: 20240410
  Serious: No
  Sender: FDA-Public Use
  Company Number: AR-PFIZER INC-PV202300187100

PATIENT
  Age: 15 Year
  Sex: Female

DRUGS (1)
  1. GENOTROPIN [Suspect]
     Active Substance: SOMATROPIN
     Indication: Growth hormone deficiency
     Dosage: 2 MG, DAILY
     Dates: start: 20181104

REACTIONS (2)
  - Device mechanical issue [Unknown]
  - Device physical property issue [Unknown]
